FAERS Safety Report 10075554 (Version 3)
Quarter: 2014Q2

REPORT INFORMATION
  Report Type: Spontaneous
  Country: DE (occurrence: DE)
  Receive Date: 20140414
  Receipt Date: 20140425
  Transmission Date: 20141212
  Serious: Yes (Other)
  Sender: FDA-Public Use
  Company Number: DE-JNJFOC-20140401637

PATIENT
  Age: 55 Year
  Sex: Male

DRUGS (2)
  1. NICORETTE SPRAY [Suspect]
     Indication: PRODUCT USED FOR UNKNOWN INDICATION
     Route: 048
  2. HIGH BLOOD PRESSURE MEDICATION NOS [Concomitant]
     Indication: PRODUCT USED FOR UNKNOWN INDICATION

REACTIONS (3)
  - Blood pressure increased [Unknown]
  - Nausea [Unknown]
  - Dizziness [Recovered/Resolved]
